FAERS Safety Report 9972182 (Version 1)
Quarter: 2014Q1

REPORT INFORMATION
  Report Type: Spontaneous
  Country: US (occurrence: None)
  Receive Date: 20140305
  Receipt Date: 20140305
  Transmission Date: 20141002
  Serious: Yes (Life-Threatening)
  Sender: FDA-Public Use
  Company Number: None

PATIENT
  Age: 69 Year
  Sex: Male
  Weight: 79.38 kg

DRUGS (1)
  1. NOVOLOG 70/30 INSULIN, 100 UNITS [Suspect]
     Indication: TYPE 2 DIABETES MELLITUS

REACTIONS (3)
  - Erythema [None]
  - Swelling face [None]
  - Product substitution issue [None]
